FAERS Safety Report 18944104 (Version 2)
Quarter: 2024Q3

REPORT INFORMATION
  Report Type: Spontaneous
  Country: ES (occurrence: ES)
  Receive Date: 20210226
  Receipt Date: 20240809
  Transmission Date: 20241016
  Serious: Yes (Life-Threatening, Disabling)
  Sender: AMGEN
  Company Number: None

PATIENT
  Age: 39 Year
  Sex: Female
  Weight: 53 kg

DRUGS (2)
  1. AIMOVIG [Suspect]
     Active Substance: ERENUMAB-AOOE
     Indication: Migraine
     Dosage: 70MG, 28 D (1 EVERY 28 DAYS, SOLUTION FOR INJECTION IN A PRE-FILLED PEN, 1 PRE-FILLED PEN OF 1ML)
     Route: 058
     Dates: start: 20200214
  2. TRYPTIZOL [Concomitant]
     Active Substance: AMITRIPTYLINE HYDROCHLORIDE
     Indication: Migraine
     Dosage: UNK (1 EVERY 24 HOURS 50MG FILM COATED TABLETS, 30 TABLETS)
     Route: 065
     Dates: start: 20160222

REACTIONS (3)
  - Anxiety [Not Recovered/Not Resolved]
  - Depression [Not Recovered/Not Resolved]
  - Migraine [Not Recovered/Not Resolved]

NARRATIVE: CASE EVENT DATE: 20200313
